FAERS Safety Report 8823260 (Version 1)
Quarter: 2012Q4

REPORT INFORMATION
  Report Type: Report from Study
  Country: US (occurrence: US)
  Receive Date: 20121003
  Receipt Date: 20121003
  Transmission Date: 20130627
  Serious: Yes (Hospitalization)
  Sender: FDA-Public Use
  Company Number: US-GLAXOSMITHKLINE-A0996020A

PATIENT
  Sex: Female
  Weight: 109.8 kg

DRUGS (1)
  1. PAZOPANIB [Suspect]
     Indication: NEOPLASM
     Dosage: 800MG Cyclic
     Route: 048
     Dates: start: 20120807

REACTIONS (4)
  - Embolism [Not Recovered/Not Resolved]
  - Hyperglycaemia [Not Recovered/Not Resolved]
  - Hyperkalaemia [Not Recovered/Not Resolved]
  - Hypothyroidism [Not Recovered/Not Resolved]
